FAERS Safety Report 5390292-7 (Version None)
Quarter: 2007Q3

REPORT INFORMATION
  Report Type: 
  Country: None (occurrence: None)
  Receive Date: 20070718
  Receipt Date: 20070706
  Transmission Date: 20080115
  Serious: Yes (Other)
  Sender: FDA-Public Use
  Company Number: US-PFIZER INC-2007047508

PATIENT
  Sex: Female

DRUGS (7)
  1. CHANTIX [Suspect]
     Indication: SMOKING CESSATION THERAPY
     Route: 048
  2. DOXYCYCLINE [Suspect]
  3. MAXZIDE [Concomitant]
  4. XANAX [Concomitant]
  5. ALLEGRA [Concomitant]
  6. COMBIVENT [Concomitant]
  7. TUSSIONEX [Concomitant]

REACTIONS (3)
  - DEPRESSION [None]
  - HAEMOPHILUS INFECTION [None]
  - NAUSEA [None]
